FAERS Safety Report 20385793 (Version 2)
Quarter: 2022Q2

REPORT INFORMATION
  Report Type: Spontaneous
  Country: US (occurrence: US)
  Receive Date: 20220127
  Receipt Date: 20220517
  Transmission Date: 20220721
  Serious: No
  Sender: FDA-Public Use
  Company Number: US-GUERBET-US-20210188

PATIENT
  Sex: Female

DRUGS (1)
  1. DOTAREM [Suspect]
     Active Substance: GADOTERATE MEGLUMINE
     Indication: Magnetic resonance imaging breast
     Route: 065
     Dates: start: 20180207, end: 20180207

REACTIONS (2)
  - Product residue present [Unknown]
  - No adverse event [Unknown]

NARRATIVE: CASE EVENT DATE: 20180101
